FAERS Safety Report 5051076-2 (Version None)
Quarter: 2006Q2

REPORT INFORMATION
  Report Type: 
  Country: None (occurrence: None)
  Receive Date: 20060614
  Receipt Date: 20060313
  Transmission Date: 20061013
  Serious: Yes (Other)
  Sender: FDA-Public Use
  Company Number: 440506

PATIENT
  Age: 74 Year
  Sex: Female

DRUGS (3)
  1. BONIVA [Suspect]
     Indication: OSTEOPOROSIS
     Dosage: 1 PER MONTH ORAL
     Route: 048
     Dates: start: 20051115, end: 20060215
  2. GERITOL (ASCORBIC ACID/IRON NOS/VITAMIN B COMPLEX) [Concomitant]
  3. CALCIUM (CALCIUM) [Concomitant]

REACTIONS (3)
  - ARTHRALGIA [None]
  - BONE PAIN [None]
  - PAIN IN EXTREMITY [None]
